FAERS Safety Report 8620420-9 (Version None)
Quarter: 2012Q3

REPORT INFORMATION
  Report Type: 
  Country: None (occurrence: None)
  Receive Date: 20120824
  Receipt Date: 20120818
  Transmission Date: 20120928
  Serious: Yes (Hospitalization)
  Sender: FDA-Public Use
  Company Number: CH-GLAXOSMITHKLINE-B0824822A

PATIENT

DRUGS (1)
  1. ARIXTRA [Suspect]
     Indication: ACUTE MYOCARDIAL INFARCTION

REACTIONS (1)
  - GASTROINTESTINAL HAEMORRHAGE [None]
